FAERS Safety Report 5158373-0 (Version None)
Quarter: 2006Q4

REPORT INFORMATION
  Report Type: 
  Country: None (occurrence: None)
  Receive Date: 20061128
  Receipt Date: 20060822
  Transmission Date: 20070319
  Serious: No
  Sender: FDA-Public Use
  Company Number: US-GLAXOSMITHKLINE-A0617659A

PATIENT
  Age: 67 Year
  Sex: Female

DRUGS (4)
  1. LANOXIN [Suspect]
     Indication: ATRIAL FIBRILLATION
     Dosage: .25MG PER DAY
     Route: 048
     Dates: start: 19970101
  2. COUMADIN [Concomitant]
  3. NORPACE [Concomitant]
  4. SYNTHROID [Concomitant]

REACTIONS (2)
  - BALANCE DISORDER [None]
  - HEPATIC PAIN [None]
